FAERS Safety Report 13094573 (Version 1)
Quarter: 2017Q1

REPORT INFORMATION
  Report Type: Spontaneous
  Country: US (occurrence: US)
  Receive Date: 20170106
  Receipt Date: 20170106
  Transmission Date: 20170428
  Serious: No
  Sender: FDA-Public Use
  Company Number: US-TEVA-726556USA

PATIENT
  Sex: Female

DRUGS (1)
  1. PROAIR HFA [Suspect]
     Active Substance: ALBUTEROL SULFATE
     Indication: LUNG INFECTION
     Route: 065
     Dates: start: 20161212, end: 201612

REACTIONS (3)
  - Product use issue [Unknown]
  - Sneezing [Unknown]
  - Nasal disorder [Unknown]

NARRATIVE: CASE EVENT DATE: 20161212
